FAERS Safety Report 5378776-9 (Version None)
Quarter: 2007Q3

REPORT INFORMATION
  Report Type: 
  Country: None (occurrence: None)
  Receive Date: 20070705
  Receipt Date: 20070704
  Transmission Date: 20080115
  Serious: Yes (Hospitalization)
  Sender: FDA-Public Use
  Company Number: D0053847A

PATIENT
  Age: 58 Year
  Weight: 65 kg

DRUGS (1)
  1. QUILONUM RETARD [Suspect]
     Dosage: 450MG UNKNOWN
     Route: 048

REACTIONS (4)
  - BLOOD CREATININE INCREASED [None]
  - DEHYDRATION [None]
  - DIARRHOEA [None]
  - SOMNOLENCE [None]
